FAERS Safety Report 4648237-0 (Version None)
Quarter: 2005Q2

REPORT INFORMATION
  Report Type: 
  Country: None (occurrence: None)
  Receive Date: 20050331
  Receipt Date: 20050211
  Transmission Date: 20051028
  Serious: No
  Sender: FDA-Public Use
  Company Number: 05P-163-0290334-00

PATIENT
  Age: 66 Year
  Sex: Female
  Weight: 83.9154 kg

DRUGS (16)
  1. HUMIRA [Suspect]
     Indication: RHEUMATOID ARTHRITIS
     Dosage: 40 MG, 1 IN 1 WK, SUBCUTANEOUS;  40 MG, SUBCUTANEOUS
     Route: 058
     Dates: start: 20040101, end: 20050101
  2. HUMIRA [Suspect]
     Indication: RHEUMATOID ARTHRITIS
     Dosage: 40 MG, 1 IN 1 WK, SUBCUTANEOUS;  40 MG, SUBCUTANEOUS
     Route: 058
     Dates: start: 20050211
  3. LORATADINE [Concomitant]
  4. MULTI-VITAMINS [Concomitant]
  5. CALCIUM GLUCONATE [Concomitant]
  6. ERGOCALCIFEROL [Concomitant]
  7. ASCORBIC ACID [Concomitant]
  8. IRON [Concomitant]
  9. LEVOTHYROXINE SODIUM [Concomitant]
  10. ALENDRONATE SODIUM [Concomitant]
  11. GLIBENCLAMIDE [Concomitant]
  12. DIOVAN [Concomitant]
  13. AZATHIOPRINE [Concomitant]
  14. CITALOPRAM HYDROBROMIDE [Concomitant]
  15. AMITRIPTYLINE HCL TAB [Concomitant]
  16. OMEPRAZOLE [Concomitant]

REACTIONS (1)
  - BRONCHITIS [None]
